FAERS Safety Report 5724497-X (Version None)
Quarter: 2008Q2

REPORT INFORMATION
  Report Type: 
  Country: None (occurrence: None)
  Receive Date: 20080429
  Receipt Date: 20080422
  Transmission Date: 20081010
  Serious: Yes (Other)
  Sender: FDA-Public Use
  Company Number: 2008SP006493

PATIENT
  Age: 53 Year
  Sex: Male

DRUGS (5)
  1. PEGETRON (PEGINTERFERON ALFA-2B W/RIBAVIRIN) (PEGYLATED INTERFERON ALF [Suspect]
     Indication: HEPATITIS C
     Dosage: 200 MG;QW;PO
     Route: 048
     Dates: start: 20080116, end: 20080404
  2. PEGETRON (PEGINTERFERON ALFA-2B W/RIBAVIRIN) (PEGYLATED INTERFERON ALF [Suspect]
     Dosage: 150 MCG;SC
     Route: 058
     Dates: start: 20080116, end: 20080404
  3. DEXAMETHASONE [Concomitant]
  4. FLUOXETINE [Concomitant]
  5. MICARDIS [Concomitant]

REACTIONS (3)
  - BLINDNESS [None]
  - OPTIC NERVE INJURY [None]
  - VISUAL ACUITY REDUCED [None]
